FAERS Safety Report 9412717 (Version 1)
Quarter: 2013Q3

REPORT INFORMATION
  Report Type: Spontaneous
  Country: US (occurrence: US)
  Receive Date: 20130722
  Receipt Date: 20130722
  Transmission Date: 20140515
  Serious: No
  Sender: FDA-Public Use
  Company Number: US-PFIZER INC-2013212116

PATIENT
  Age: 36 Year
  Sex: Female
  Weight: 82.54 kg

DRUGS (3)
  1. XELJANZ [Suspect]
     Indication: ARTHRITIS
     Dosage: 5 MG, 2X/DAY
     Route: 048
     Dates: start: 20130717, end: 20130718
  2. OXYCODONE [Concomitant]
     Indication: PAIN
     Dosage: UNK
  3. MS CONTIN [Concomitant]
     Indication: PAIN
     Dosage: UNK

REACTIONS (3)
  - Pharyngeal oedema [Recovering/Resolving]
  - Throat irritation [Recovering/Resolving]
  - Oropharyngeal discomfort [Recovering/Resolving]
